FAERS Safety Report 8620816-5 (Version None)
Quarter: 2012Q3

REPORT INFORMATION
  Report Type: 
  Country: None (occurrence: None)
  Receive Date: 20120824
  Receipt Date: 20100327
  Transmission Date: 20120928
  Serious: Yes (Other)
  Sender: FDA-Public Use
  Company Number: PT-ROCHE-1093056

PATIENT
  Age: 49 Year
  Sex: Male

DRUGS (2)
  1. COPEGUS [Suspect]
     Indication: HEPATITIS C
  2. PEGASYS [Suspect]
     Indication: HEPATITIS C

REACTIONS (8)
  - APATHY [None]
  - DEPRESSION [None]
  - DRUG INEFFECTIVE [None]
  - SLEEP DISORDER [None]
  - DEPRESSED MOOD [None]
  - ASTHENIA [None]
  - CACHEXIA [None]
  - PSYCHIATRIC SYMPTOM [None]
